FAERS Safety Report 6801075-2 (Version None)
Quarter: 2010Q2

REPORT INFORMATION
  Report Type: 
  Country: None (occurrence: None)
  Receive Date: 20100629
  Receipt Date: 20100624
  Transmission Date: 20101027
  Serious: Yes (Disabling)
  Sender: FDA-Public Use
  Company Number: JP-BRACCO-003645

PATIENT
  Age: 71 Year
  Sex: Female

DRUGS (1)
  1. IOPAMIDOL [Suspect]
     Indication: ANGIOGRAM CEREBRAL
     Route: 013
     Dates: start: 20100609, end: 20100609

REACTIONS (2)
  - ABNORMAL BEHAVIOUR [None]
  - CEREBRAL INFARCTION [None]
